FAERS Safety Report 4319000-5 (Version None)
Quarter: 2004Q1

REPORT INFORMATION
  Report Type: 
  Country: None (occurrence: None)
  Receive Date: 20040316
  Receipt Date: 20040216
  Transmission Date: 20041129
  Serious: Yes (Hospitalization)
  Sender: FDA-Public Use
  Company Number: EM2004-0083

PATIENT

DRUGS (10)
  1. PROLEUKIN [Suspect]
     Indication: RENAL CELL CARCINOMA STAGE UNSPECIFIED
  2. INTERFERON ALFA (INTERFERON ALFA) [Suspect]
     Indication: RENAL CELL CARCINOMA STAGE UNSPECIFIED
  3. FLUOROURACIL [Suspect]
     Indication: RENAL CELL CARCINOMA STAGE UNSPECIFIED
  4. ATENOLOL [Concomitant]
  5. CANDESARTAN (CANDESARTAN) [Concomitant]
  6. ONDANSETRON HCL [Concomitant]
  7. FUROSEMIDE [Concomitant]
  8. ACETAMINOPHEN [Concomitant]
  9. LOPERAMIDE HCL [Concomitant]
  10. WARFARIN SODIUM [Concomitant]

REACTIONS (1)
  - RESPITE CARE [None]
